FAERS Safety Report 4946910-8 (Version None)
Quarter: 2006Q1

REPORT INFORMATION
  Report Type: 
  Country: None (occurrence: None)
  Receive Date: 20060317
  Receipt Date: 20060308
  Transmission Date: 20060701
  Serious: Yes (Death)
  Sender: FDA-Public Use
  Company Number: US-JNJFOC-20060203601

PATIENT
  Sex: Female
  Weight: 43.09 kg

DRUGS (1)
  1. RISPERDAL [Suspect]
     Indication: DRUG USE FOR UNKNOWN INDICATION
     Route: 048
     Dates: start: 20050401

REACTIONS (2)
  - CARDIAC FAILURE CONGESTIVE [None]
  - RESPIRATORY FAILURE [None]
